FAERS Safety Report 16890586 (Version 1)
Quarter: 2019Q4

REPORT INFORMATION
  Report Type: Spontaneous
  Country: US (occurrence: US)
  Receive Date: 20190812
  Receipt Date: 20190812
  Transmission Date: 20200122
  Serious: No
  Sender: FDA-Public Use
  Company Number: None

PATIENT
  Age: 54 Year
  Sex: Female

DRUGS (1)
  1. IBRANCE [Suspect]
     Active Substance: PALBOCICLIB
     Dates: start: 20190618

REACTIONS (3)
  - Hernia [None]
  - Abdominal pain [None]
  - Malignant neoplasm progression [None]

NARRATIVE: CASE EVENT DATE: 20190812
